FAERS Safety Report 7405384-8 (Version None)
Quarter: 2011Q2

REPORT INFORMATION
  Report Type: 
  Country: None (occurrence: None)
  Receive Date: 20110411
  Receipt Date: 20110408
  Transmission Date: 20111010
  Serious: Yes (Death, Life-Threatening, Hospitalization)
  Sender: FDA-Public Use
  Company Number: PHHY2011FR06183

PATIENT
  Sex: Male

DRUGS (6)
  1. MORPHINE [Suspect]
  2. CELLCEPT [Suspect]
     Dosage: 1 G, BID
     Route: 065
     Dates: start: 20101019, end: 20101116
  3. FLUDARABINE [Suspect]
     Indication: BONE MARROW TRANSPLANT
     Dosage: 56 MG, QD
     Route: 042
     Dates: start: 20101015, end: 20101017
  4. NEORAL [Suspect]
     Dosage: 50 MG, BID
     Route: 048
     Dates: start: 20101101, end: 20101103
  5. SANDIMMUNE [Suspect]
     Dosage: 150 MG, QD
     Route: 042
     Dates: start: 20101018, end: 20101031
  6. ENDOXAN [Suspect]
     Indication: BONE MARROW CONDITIONING REGIMEN
     Dosage: 1390 MG, QD
     Route: 042
     Dates: start: 20101015, end: 20101017

REACTIONS (27)
  - OESOPHAGITIS [None]
  - ALTERED STATE OF CONSCIOUSNESS [None]
  - DUODENAL ULCER [None]
  - HYPERTONIA [None]
  - ENCEPHALOPATHY [None]
  - MOTOR DYSFUNCTION [None]
  - RENAL FAILURE [None]
  - ANGIOEDEMA [None]
  - PYREXIA [None]
  - CHILLS [None]
  - BONE MARROW FAILURE [None]
  - OVERDOSE [None]
  - CONDITION AGGRAVATED [None]
  - CEREBROVASCULAR DISORDER [None]
  - VISUAL IMPAIRMENT [None]
  - HYPERTENSION [None]
  - FALL [None]
  - DISORIENTATION [None]
  - ENCEPHALITIS [None]
  - BRAIN COMPRESSION [None]
  - DISTURBANCE IN ATTENTION [None]
  - HAEMODYNAMIC INSTABILITY [None]
  - COMA [None]
  - PYRAMIDAL TRACT SYNDROME [None]
  - CONFUSIONAL STATE [None]
  - PUPILS UNEQUAL [None]
  - DYSSTASIA [None]
